FAERS Safety Report 21435389 (Version 2)
Quarter: 2022Q4

REPORT INFORMATION
  Report Type: Spontaneous
  Country: TW (occurrence: TW)
  Receive Date: 20221010
  Receipt Date: 20221014
  Transmission Date: 20230112
  Serious: Yes (Hospitalization, Other)
  Sender: FDA-Public Use
  Company Number: TW-TAKEDA-2022TUS070979

PATIENT
  Age: 41 Year
  Sex: Female
  Weight: 43 kg

DRUGS (5)
  1. ENTYVIO [Suspect]
     Active Substance: VEDOLIZUMAB
     Indication: Colitis ulcerative
     Dosage: 300 MILLIGRAM
     Route: 042
     Dates: start: 20200612, end: 20210208
  2. ENTYVIO [Suspect]
     Active Substance: VEDOLIZUMAB
     Indication: Crohn^s disease
  3. USTEKINUMAB [Concomitant]
     Active Substance: USTEKINUMAB
     Dosage: UNK UNK, Q8WEEKS
     Route: 042
     Dates: start: 20210411
  4. USTEKINUMAB [Concomitant]
     Active Substance: USTEKINUMAB
     Dosage: UNK UNK, Q8WEEKS
     Route: 058
     Dates: start: 20210607, end: 20220912
  5. PENTASA [Concomitant]
     Active Substance: MESALAMINE
     Indication: Back pain
     Dosage: 2 GRAM, QD
     Dates: start: 20210927

REACTIONS (5)
  - Female genital tract fistula [Unknown]
  - Crohn^s disease [Unknown]
  - Intestinal perforation [Unknown]
  - Abdominal abscess [Unknown]
  - Vesical fistula [Unknown]

NARRATIVE: CASE EVENT DATE: 20201127
